FAERS Safety Report 24291265 (Version 1)
Quarter: 2024Q3

REPORT INFORMATION
  Report Type: Spontaneous
  Country: US (occurrence: None)
  Receive Date: 20240906
  Receipt Date: 20240906
  Transmission Date: 20241016
  Serious: No
  Sender: DOMPE FARMACEUTICI
  Company Number: US-FARMAPROD-202308-202308-2412

PATIENT
  Sex: Female
  Weight: 137.8 kg

DRUGS (18)
  1. OXERVATE [Suspect]
     Active Substance: CENEGERMIN-BKBJ
     Indication: Neurotrophic keratopathy
     Route: 047
     Dates: start: 20230807
  2. OXERVATE [Suspect]
     Active Substance: CENEGERMIN-BKBJ
  3. INSULIN ASPART [Concomitant]
     Active Substance: INSULIN ASPART
     Dosage: FLEXPEN.
  4. ASPIRIN [Concomitant]
     Active Substance: ASPIRIN
  5. OFLOXACIN [Concomitant]
     Active Substance: OFLOXACIN
  6. PREDNISOLONE ACETATE [Concomitant]
     Active Substance: PREDNISOLONE ACETATE
  7. LOTEPREDNOL ETABONATE [Concomitant]
     Active Substance: LOTEPREDNOL ETABONATE
  8. LEVOTHYROXINE SODIUM [Concomitant]
     Active Substance: LEVOTHYROXINE SODIUM
  9. FOSINOPRIL SODIUM [Concomitant]
     Active Substance: FOSINOPRIL SODIUM
  10. MONTELUKAST SODIUM [Concomitant]
     Active Substance: MONTELUKAST\MONTELUKAST SODIUM
  11. HUMALOG [Concomitant]
     Active Substance: INSULIN LISPRO
     Dosage: KWIKPEN
  12. TIMOLOL MALEATE [Concomitant]
     Active Substance: TIMOLOL MALEATE
  13. FUROSEMIDE [Concomitant]
     Active Substance: FUROSEMIDE
  14. VERAPAMIL [Concomitant]
     Active Substance: VERAPAMIL HYDROCHLORIDE
  15. LANTUS SOLOSTAR [Concomitant]
     Active Substance: INSULIN GLARGINE
  16. CLOPIDOGREL [Concomitant]
     Active Substance: CLOPIDOGREL BISULFATE
  17. REPATHA [Concomitant]
     Active Substance: EVOLOCUMAB
  18. RESTASIS [Concomitant]
     Active Substance: CYCLOSPORINE

REACTIONS (6)
  - Vision blurred [Not Recovered/Not Resolved]
  - Product dose omission issue [Unknown]
  - Eye pain [Unknown]
  - Product use complaint [Unknown]
  - Eye irritation [Unknown]
  - Eyelid pain [Unknown]
